FAERS Safety Report 18875650 (Version 1)
Quarter: 2021Q1

REPORT INFORMATION
  Report Type: Spontaneous
  Country: US (occurrence: US)
  Receive Date: 20210210
  Receipt Date: 20210210
  Transmission Date: 20210420
  Serious: No
  Sender: FDA-Public Use
  Company Number: NVSC2021US030018

PATIENT
  Sex: Female

DRUGS (1)
  1. LATANOPROST. [Suspect]
     Active Substance: LATANOPROST
     Indication: PRODUCT USED FOR UNKNOWN INDICATION
     Dosage: 1 DRP, QD (EACH EYE)
     Route: 065

REACTIONS (4)
  - Urticaria [Unknown]
  - Swelling of eyelid [Unknown]
  - Hypersensitivity [Unknown]
  - Eyelid exfoliation [Unknown]
